FAERS Safety Report 9172912 (Version 2)
Quarter: 2013Q4

REPORT INFORMATION
  Report Type: Spontaneous
  Country: US (occurrence: US)
  Receive Date: 20120911
  Receipt Date: 20131101
  Transmission Date: 20140711
  Serious: No
  Sender: FDA-Public Use
  Company Number: US-009507513-1208USA010842

PATIENT
  Age: 84 Year
  Sex: Female
  Weight: 58.96 kg

DRUGS (4)
  1. JANUVIA [Suspect]
     Indication: BLOOD GLUCOSE INCREASED
     Dosage: 1 DF, ONCE
     Route: 048
     Dates: start: 20120822
  2. METHYLPREDNISOLONE [Suspect]
     Indication: HYPERSENSITIVITY
     Dosage: 2 DF, ONCE
     Route: 048
     Dates: start: 20120822
  3. METHYLPREDNISOLONE [Suspect]
     Dosage: 2 DF, ONCE
     Route: 048
     Dates: start: 20120822
  4. METHYLPREDNISOLONE [Suspect]
     Dosage: 2 DF, ONCE, BEDTIME
     Route: 048
     Dates: start: 20120822

REACTIONS (1)
  - Blood glucose increased [Unknown]
